FAERS Safety Report 14217077 (Version 2)
Quarter: 2018Q4

REPORT INFORMATION
  Report Type: Spontaneous
  Country: AR (occurrence: AR)
  Receive Date: 20171122
  Receipt Date: 20181019
  Transmission Date: 20190204
  Serious: Yes (Hospitalization, Other)
  Sender: FDA-Public Use
  Company Number: AR-AMGEN-ARGSP2017175180

PATIENT
  Age: 64 Year
  Sex: Female

DRUGS (1)
  1. ENBREL [Suspect]
     Active Substance: ETANERCEPT
     Indication: RHEUMATOID ARTHRITIS
     Dosage: 50 MG, WEEKLY
     Route: 065
     Dates: start: 20160404

REACTIONS (8)
  - Pericarditis [Unknown]
  - Liver disorder [Recovering/Resolving]
  - Pleural effusion [Unknown]
  - Decreased immune responsiveness [Recovering/Resolving]
  - Tuberculosis [Recovering/Resolving]
  - Immunosuppression [Recovering/Resolving]
  - Pericardial effusion [Recovering/Resolving]
  - Haemorrhage [Recovering/Resolving]

NARRATIVE: CASE EVENT DATE: 201709
